FAERS Safety Report 13054062 (Version 1)
Quarter: 2016Q4

REPORT INFORMATION
  Report Type: Spontaneous
  Country: US (occurrence: US)
  Receive Date: 20161222
  Receipt Date: 20161222
  Transmission Date: 20170207
  Serious: No
  Sender: FDA-Public Use
  Company Number: None

PATIENT

DRUGS (3)
  1. HYDROXYZINE HCL [Suspect]
     Active Substance: HYDROXYZINE HYDROCHLORIDE
     Dosage: LIQUID DOSAGE FORM
  2. HYDROXYCHLOROQUINE SULFATE. [Suspect]
     Active Substance: HYDROXYCHLOROQUINE SULFATE
  3. HYDROXYUREA. [Suspect]
     Active Substance: HYDROXYUREA
     Dosage: LIQUID DOSAGE FORM

REACTIONS (2)
  - Drug dispensing error [None]
  - Wrong drug administered [None]
